FAERS Safety Report 6422293-1 (Version None)
Quarter: 2009Q4

REPORT INFORMATION
  Report Type: 
  Country: None (occurrence: None)
  Receive Date: 20091030
  Receipt Date: 20091019
  Transmission Date: 20100525
  Serious: Yes (Death)
  Sender: FDA-Public Use
  Company Number: CO-PFIZER INC-2009264104

PATIENT
  Age: 40 Year

DRUGS (6)
  1. SULPERAZON [Suspect]
     Indication: ACINETOBACTER INFECTION
     Dosage: 1.5 G, 3X/DAY
     Route: 042
     Dates: start: 20090802, end: 20090808
  2. PHENYTOIN [Concomitant]
     Dosage: 100 MG, 3X/DAY
     Route: 042
  3. VALPROIC ACID [Concomitant]
     Dosage: 250 MG, 3X/DAY
     Route: 049
  4. PARACETAMOL [Concomitant]
     Dosage: 1 G, 4X/DAY
  5. ENOXAPARIN SODIUM [Concomitant]
     Dosage: 60 MG, 1X/DAY
  6. RANITIDINE [Concomitant]
     Dosage: 50 MG, 2X/DAY

REACTIONS (3)
  - INFLAMMATION [None]
  - ORGAN FAILURE [None]
  - PERITONITIS [None]
